FAERS Safety Report 10423408 (Version 1)
Quarter: 2014Q3

REPORT INFORMATION
  Report Type: Spontaneous
  Country: US (occurrence: US)
  Receive Date: 20140902
  Receipt Date: 20140902
  Transmission Date: 20150326
  Serious: Yes (Other)
  Sender: FDA-Public Use
  Company Number: US-BAYER-2014-127441

PATIENT
  Sex: Female
  Weight: .65 kg

DRUGS (10)
  1. BETAMETHASONE [Concomitant]
     Active Substance: BETAMETHASONE
     Indication: MATERNAL THERAPY TO ENHANCE FOETAL LUNG MATURITY
     Route: 064
  2. BETAMETHASONE [Concomitant]
     Active Substance: BETAMETHASONE
     Indication: MATERNAL THERAPY TO ENHANCE FOETAL LUNG MATURITY
     Route: 064
  3. METYRAPONE [Concomitant]
     Active Substance: METYRAPONE
     Route: 064
  4. METYRAPONE [Concomitant]
     Active Substance: METYRAPONE
     Route: 064
  5. LABETALOL [Concomitant]
     Active Substance: LABETALOL\LABETALOL HYDROCHLORIDE
     Route: 064
  6. LABETALOL [Concomitant]
     Active Substance: LABETALOL\LABETALOL HYDROCHLORIDE
     Route: 064
  7. MAGNESIUM SULFATE [Concomitant]
     Active Substance: MAGNESIUM SULFATE
     Route: 064
  8. NIFEDIPINE (CC) [Suspect]
     Active Substance: NIFEDIPINE
     Route: 064
  9. MAGNESIUM SULFATE [Concomitant]
     Active Substance: MAGNESIUM SULFATE
     Route: 064
  10. NIFEDIPINE (CC) [Suspect]
     Active Substance: NIFEDIPINE
     Route: 064

REACTIONS (4)
  - Low birth weight baby [None]
  - Foetal growth restriction [None]
  - Premature delivery [None]
  - Foetal exposure during pregnancy [None]
